FAERS Safety Report 9786017 (Version 1)
Quarter: 2013Q4

REPORT INFORMATION
  Report Type: Spontaneous
  Country: MX (occurrence: MX)
  Receive Date: 20131227
  Receipt Date: 20131227
  Transmission Date: 20140711
  Serious: Yes (Other)
  Sender: FDA-Public Use
  Company Number: MX-PFIZER INC-2013369008

PATIENT
  Age: 56 Year
  Sex: Female
  Weight: 76 kg

DRUGS (2)
  1. PREMARIN [Suspect]
     Indication: DEPRESSION
     Dosage: 2 DF, 1X/DAY
     Route: 048
     Dates: start: 1998
  2. MOTIVAL [Concomitant]
     Indication: NERVOUSNESS

REACTIONS (5)
  - Nephrolithiasis [Unknown]
  - Coordination abnormal [Unknown]
  - Abnormal behaviour [Unknown]
  - Impaired driving ability [Unknown]
  - Intentional drug misuse [Unknown]
